FAERS Safety Report 6200842-6 (Version None)
Quarter: 2009Q2

REPORT INFORMATION
  Report Type: 
  Country: None (occurrence: None)
  Receive Date: 20090522
  Receipt Date: 20081001
  Transmission Date: 20091009
  Serious: No
  Sender: FDA-Public Use
  Company Number: US-ALEXION-A200800126

PATIENT
  Sex: Male

DRUGS (14)
  1. SOLIRIS [Suspect]
     Indication: PAROXYSMAL NOCTURNAL HAEMOGLOBINURIA
     Dosage: 600 MG, SINGLE
     Route: 042
     Dates: start: 20080513, end: 20080513
  2. SOLIRIS [Suspect]
     Dosage: 600 MG, SINGLE
     Route: 042
     Dates: start: 20080520, end: 20080520
  3. SOLIRIS [Suspect]
     Dosage: 600 MG, SINGLE
     Route: 042
     Dates: start: 20080527, end: 20080527
  4. SOLIRIS [Suspect]
     Dosage: 600 MG, SINGLE
     Route: 042
     Dates: start: 20080603, end: 20080603
  5. SOLIRIS [Suspect]
     Dosage: 900 MG, SINGLE
     Route: 042
     Dates: start: 20080610, end: 20080610
  6. SOLIRIS [Suspect]
     Dosage: 900 MG, SINGLE
     Route: 042
     Dates: start: 20080622, end: 20080622
  7. SOLIRIS [Suspect]
     Dosage: 900 MG, SINGLE
     Route: 042
     Dates: start: 20080708, end: 20080708
  8. SOLIRIS [Suspect]
     Dosage: 900 MG, SINGLE
     Route: 042
     Dates: start: 20080722, end: 20080722
  9. SOLIRIS [Suspect]
     Dosage: 900 MG, SINGLE
     Route: 042
     Dates: start: 20080807, end: 20080807
  10. ZANTAC [Concomitant]
     Dosage: UNK, QD
     Route: 048
  11. FOLIC ACID [Concomitant]
     Indication: PAROXYSMAL NOCTURNAL HAEMOGLOBINURIA
     Dosage: UNK, QD
     Route: 048
  12. IRON [Concomitant]
     Dosage: UNK, QD
     Route: 048
  13. ZYPREXA [Concomitant]
     Dosage: UNK, QD
     Route: 048
  14. AMLODIPINE [Concomitant]
     Dosage: UNK, QD
     Route: 048

REACTIONS (4)
  - CONTUSION [None]
  - ERYTHEMA [None]
  - NASOPHARYNGITIS [None]
  - OEDEMA PERIPHERAL [None]
